FAERS Safety Report 9237203 (Version 2)
Quarter: 2013Q2

REPORT INFORMATION
  Report Type: Spontaneous
  Country: US (occurrence: US)
  Receive Date: 20130417
  Receipt Date: 20130521
  Transmission Date: 20140414
  Serious: Yes (Hospitalization, Other)
  Sender: FDA-Public Use
  Company Number: US-PFIZER INC-2013121343

PATIENT
  Sex: Female

DRUGS (1)
  1. NEURONTIN [Suspect]
     Indication: NEURALGIA
     Dosage: 600 MG, 3X/DAY

REACTIONS (6)
  - Off label use [Unknown]
  - Convulsion [Unknown]
  - Loss of consciousness [Unknown]
  - Diabetic neuropathy [Unknown]
  - Drug intolerance [Unknown]
  - Malaise [Unknown]
